FAERS Safety Report 13981939 (Version 3)
Quarter: 2017Q3

REPORT INFORMATION
  Report Type: Report from Study
  Country: IT (occurrence: IT)
  Receive Date: 20170918
  Receipt Date: 20170928
  Transmission Date: 20171128
  Serious: Yes (Other)
  Sender: FDA-Public Use
  Company Number: IT-ROCHE-1987966

PATIENT
  Age: 76 Year
  Sex: Female
  Weight: 66 kg

DRUGS (5)
  1. OBINUTUZUMAB. [Suspect]
     Active Substance: OBINUTUZUMAB
     Indication: DIFFUSE LARGE B-CELL LYMPHOMA
     Dosage: LAST ADMINISTRATION OF OBINUTUZUMAB BEFORE EVENT WAS ON 06/OCT/2016?EVERY 21 DAYS (FOR A TOTAL OF 6
     Route: 042
     Dates: start: 20160429
  2. VINCRISTINE [Suspect]
     Active Substance: VINCRISTINE
     Indication: DIFFUSE LARGE B-CELL LYMPHOMA
     Dosage: LAST ADMINISTRATION ON 24/AUG/2016?CUMULATIVE DOSE:6 MG
     Route: 042
     Dates: start: 20160430
  3. PREDNISONE. [Suspect]
     Active Substance: PREDNISONE
     Indication: DIFFUSE LARGE B-CELL LYMPHOMA
     Dosage: LAST ADMINISTRATION DATE BEFORE EVENT : 28/AUG/2016?CUMULATIVE DOSE 2247.0
     Route: 048
     Dates: start: 20160430
  4. DOXORUBICINE [Suspect]
     Active Substance: DOXORUBICIN
     Indication: DIFFUSE LARGE B-CELL LYMPHOMA
     Dosage: CUMULATIVE DOSE 288.0?LAST ADMINISTRATION ON 24/AUG/2016
     Route: 042
     Dates: start: 20160430
  5. CYCLOPHOSPHAMIDE. [Suspect]
     Active Substance: CYCLOPHOSPHAMIDE
     Indication: DIFFUSE LARGE B-CELL LYMPHOMA
     Dosage: CUMULATIVE DOSE 4620.0?LAST ADMINISTRATION ON 24/AUG/2016
     Route: 042
     Dates: start: 20160430

REACTIONS (1)
  - Non-small cell lung cancer [Unknown]

NARRATIVE: CASE EVENT DATE: 20170719
